FAERS Safety Report 26204934 (Version 1)
Quarter: 2025Q4

REPORT INFORMATION
  Report Type: Spontaneous
  Country: EU (occurrence: EU)
  Receive Date: 20251227
  Receipt Date: 20251227
  Transmission Date: 20260118
  Serious: Yes (Other)
  Sender: AMGEN
  Company Number: EU-ABBVIE-6572760

PATIENT
  Age: 30 Year
  Sex: Female

DRUGS (7)
  1. ADALIMUMAB [Suspect]
     Active Substance: ADALIMUMAB
     Indication: Colitis ulcerative
     Dosage: UNK
     Route: 058
     Dates: start: 20210114
  2. ADALIMUMAB [Suspect]
     Active Substance: ADALIMUMAB
     Dosage: UNK UNK, QWK
     Route: 058
     Dates: start: 20230719
  3. USTEKINUMAB [Concomitant]
     Active Substance: USTEKINUMAB
     Indication: Arthralgia
     Dosage: UNK UNK, Q8WK
     Route: 065
     Dates: start: 20231024, end: 20250718
  4. PREDNISONE [Concomitant]
     Active Substance: PREDNISONE
     Indication: Rheumatoid arthritis
     Dosage: 40 MILLIGRAM, QD
  5. PREDNISONE [Concomitant]
     Active Substance: PREDNISONE
     Indication: Colitis ulcerative
     Dosage: 20 MILLIGRAM, QD
     Dates: start: 20210311
  6. PREDNISONE [Concomitant]
     Active Substance: PREDNISONE
     Dosage: 40 MILLIGRAM, QD
     Dates: start: 20230803
  7. PREDNISONE [Concomitant]
     Active Substance: PREDNISONE
     Dosage: 20 MILLIGRAM, QD
     Dates: start: 20250523, end: 20251104

REACTIONS (5)
  - Colitis ulcerative [Unknown]
  - Maternal exposure during pregnancy [Unknown]
  - Live birth [Unknown]
  - Gait inability [Unknown]
  - Fatigue [Unknown]

NARRATIVE: CASE EVENT DATE: 20230101
